FAERS Safety Report 11825656 (Version 3)
Quarter: 2016Q4

REPORT INFORMATION
  Report Type: Spontaneous
  Country: US (occurrence: US)
  Receive Date: 20151211
  Receipt Date: 20161017
  Transmission Date: 20170206
  Serious: No
  Sender: FDA-Public Use
  Company Number: US-JNJFOC-20150704786

PATIENT
  Age: 69 Year
  Sex: Female

DRUGS (23)
  1. PROAIR HFA [Concomitant]
     Active Substance: ALBUTEROL SULFATE
  2. CINNAMON. [Concomitant]
     Active Substance: CINNAMON
  3. BIOTIN [Concomitant]
     Active Substance: BIOTIN
  4. ZITHROMAX [Concomitant]
     Active Substance: AZITHROMYCIN DIHYDRATE
  5. PREDNISONE. [Concomitant]
     Active Substance: PREDNISONE
  6. VITAMIN D3 [Concomitant]
     Active Substance: CHOLECALCIFEROL
  7. GLUCOSAMINE / CHONDROITIN [Concomitant]
  8. MONTELUKAST [Concomitant]
     Active Substance: MONTELUKAST SODIUM
  9. CALCIUM [Concomitant]
     Active Substance: CALCIUM
  10. EXTRACT GINGKO BILOBA [Concomitant]
  11. OMEGA 3 [Concomitant]
     Active Substance: OMEGA-3 FATTY ACIDS
  12. NASONEX [Concomitant]
     Active Substance: MOMETASONE FUROATE
  13. DEXILANT [Concomitant]
     Active Substance: DEXLANSOPRAZOLE
  14. FLOVENT [Concomitant]
     Active Substance: FLUTICASONE PROPIONATE
  15. CO-Q10 [Concomitant]
  16. QVAR [Concomitant]
     Active Substance: BECLOMETHASONE DIPROPIONATE
  17. PROBIOTICS [Concomitant]
     Active Substance: PROBIOTICS NOS
  18. CRANBERRY PILL [Concomitant]
     Active Substance: CRANBERRY
  19. SHARK CARTILAGE [Concomitant]
     Active Substance: SHARK CARTILAGE\SHARK, UNSPECIFIED
  20. TURMERIC [Concomitant]
     Active Substance: TURMERIC
  21. VENTOLIN [Concomitant]
     Active Substance: ALBUTEROL SULFATE
  22. IMBRUVICA [Suspect]
     Active Substance: IBRUTINIB
     Indication: WALDENSTROM^S MACROGLOBULINAEMIA
     Dosage: EXPIRATION DATE- 01-JUL-2015
     Route: 048
     Dates: start: 20150516
  23. CELEBREX [Concomitant]
     Active Substance: CELECOXIB
     Route: 048

REACTIONS (14)
  - Abdominal distension [Unknown]
  - Diarrhoea [Not Recovered/Not Resolved]
  - Secretion discharge [Unknown]
  - Middle ear effusion [Unknown]
  - Sinusitis [Unknown]
  - Constipation [Unknown]
  - Vomiting [Recovered/Resolved]
  - Hypoacusis [Unknown]
  - Nausea [Recovered/Resolved]
  - Pain in extremity [Unknown]
  - Insomnia [Not Recovered/Not Resolved]
  - Cataract [Unknown]
  - Cough [Unknown]
  - White blood cell count increased [Unknown]

NARRATIVE: CASE EVENT DATE: 2015
